FAERS Safety Report 4305986-1 (Version None)
Quarter: 2004Q1

REPORT INFORMATION
  Report Type: 
  Country: None (occurrence: None)
  Receive Date: 20040225
  Receipt Date: 20040213
  Transmission Date: 20041129
  Serious: Yes (Other)
  Sender: FDA-Public Use
  Company Number: 2004198908DE

PATIENT
  Sex: Male

DRUGS (1)
  1. BEXTRA [Suspect]
     Dosage: 20 MG, QD,ORAL
     Route: 048

REACTIONS (3)
  - CARDIAC DISORDER [None]
  - HYPOAESTHESIA [None]
  - RESTLESSNESS [None]
